FAERS Safety Report 18742252 (Version 1)
Quarter: 2021Q1

REPORT INFORMATION
  Report Type: Spontaneous
  Country: US (occurrence: US)
  Receive Date: 20210114
  Receipt Date: 20210114
  Transmission Date: 20210419
  Serious: No
  Sender: FDA-Public Use
  Company Number: US-TEVA-2020-US-1180779

PATIENT
  Age: 55 Year
  Sex: Male

DRUGS (2)
  1. GABAPENTIN. [Suspect]
     Active Substance: GABAPENTIN
     Route: 065
  2. TETRABENAZINE. [Suspect]
     Active Substance: TETRABENAZINE
     Route: 065

REACTIONS (1)
  - Dizziness [Unknown]
